FAERS Safety Report 8169776-4 (Version None)
Quarter: 2012Q1

REPORT INFORMATION
  Report Type: 
  Country: None (occurrence: None)
  Receive Date: 20120228
  Receipt Date: 20120217
  Transmission Date: 20120608
  Serious: Yes (Life-Threatening, Hospitalization)
  Sender: FDA-Public Use
  Company Number: TR-BRISTOL-MYERS SQUIBB COMPANY-16415242

PATIENT
  Age: 17 Year
  Sex: Male

DRUGS (1)
  1. METFORMIN HCL [Suspect]

REACTIONS (4)
  - INTENTIONAL OVERDOSE [None]
  - CONFUSIONAL STATE [None]
  - SUICIDE ATTEMPT [None]
  - LACTIC ACIDOSIS [None]
